FAERS Safety Report 6874150-4 (Version None)
Quarter: 2010Q3

REPORT INFORMATION
  Report Type: 
  Country: None (occurrence: None)
  Receive Date: 20100723
  Receipt Date: 20090507
  Transmission Date: 20110219
  Serious: Yes (Other)
  Sender: FDA-Public Use
  Company Number: US-PFIZER INC-2009190535

PATIENT
  Sex: Female
  Weight: 52.154 kg

DRUGS (3)
  1. CHANTIX [Suspect]
     Indication: SMOKING CESSATION THERAPY
     Dosage: 1 MG, 2X/DAY
     Route: 048
     Dates: start: 20090101, end: 20090317
  2. SKELAXIN [Concomitant]
     Dosage: UNK
     Dates: end: 20090101
  3. HYDROCODONE [Concomitant]
     Dosage: UNK
     Dates: end: 20090101

REACTIONS (5)
  - ANGER [None]
  - ANXIETY [None]
  - DEPRESSION [None]
  - DISSOCIATION [None]
  - SUICIDAL BEHAVIOUR [None]
